FAERS Safety Report 4643191-X (Version None)
Quarter: 2005Q2

REPORT INFORMATION
  Report Type: 
  Country: None (occurrence: None)
  Receive Date: 20050422
  Receipt Date: 20041029
  Transmission Date: 20051028
  Serious: Yes (Life-Threatening, Disabling)
  Sender: FDA-Public Use
  Company Number: US-MERCK-0411USA00080

PATIENT
  Sex: Male

DRUGS (5)
  1. HYDROCODONE BITARTRATE [Concomitant]
     Route: 065
  2. VIOXX [Suspect]
     Indication: MYALGIA
     Route: 048
     Dates: start: 20010301, end: 20010701
  3. VIOXX [Suspect]
     Indication: BACK PAIN
     Route: 048
     Dates: start: 20010301, end: 20010701
  4. ZOCOR [Concomitant]
     Route: 065
  5. HYDROCODONE BITARTRATE [Concomitant]
     Route: 065

REACTIONS (8)
  - CEREBROVASCULAR INSUFFICIENCY [None]
  - DYSARTHRIA [None]
  - GASTRIC DISORDER [None]
  - HYPERSENSITIVITY [None]
  - HYPERTENSION [None]
  - MENTAL IMPAIRMENT [None]
  - REFUSAL OF TREATMENT BY PATIENT [None]
  - TRANSIENT ISCHAEMIC ATTACK [None]
